FAERS Safety Report 5710243-2 (Version None)
Quarter: 2008Q2

REPORT INFORMATION
  Report Type: 
  Country: None (occurrence: None)
  Receive Date: 20080418
  Receipt Date: 20080408
  Transmission Date: 20081010
  Serious: Yes (Death)
  Sender: FDA-Public Use
  Company Number: GB-PFIZER INC-2008024643

PATIENT
  Age: 43 Year
  Sex: Male

DRUGS (3)
  1. CHAMPIX [Suspect]
     Indication: SMOKING CESSATION THERAPY
     Route: 048
     Dates: start: 20080117, end: 20080125
  2. FLUPENTIXOL [Concomitant]
     Indication: PSYCHOTIC DISORDER
     Dates: start: 20070201, end: 20080117
  3. SIMVASTATIN [Concomitant]
     Indication: HYPERCHOLESTEROLAEMIA
     Route: 048
     Dates: start: 20080222

REACTIONS (2)
  - COMPLETED SUICIDE [None]
  - INTENTIONAL OVERDOSE [None]
